FAERS Safety Report 7633708-5 (Version None)
Quarter: 2011Q3

REPORT INFORMATION
  Report Type: 
  Country: None (occurrence: None)
  Receive Date: 20110725
  Receipt Date: 20110713
  Transmission Date: 20111222
  Serious: Yes (Other)
  Sender: FDA-Public Use
  Company Number: GB-UCBSA-037265

PATIENT
  Sex: Female

DRUGS (2)
  1. KEPPRA [Suspect]
  2. LEVOTHYROXINE SODIUM [Concomitant]
     Indication: HYPERTHYROIDISM

REACTIONS (5)
  - CONVULSION [None]
  - UPPER RESPIRATORY TRACT INFLAMMATION [None]
  - UPPER RESPIRATORY TRACT CONGESTION [None]
  - HYPERTHYROIDISM [None]
  - LOSS OF CONSCIOUSNESS [None]
